FAERS Safety Report 7834084-5 (Version None)
Quarter: 2011Q4

REPORT INFORMATION
  Report Type: 
  Country: None (occurrence: None)
  Receive Date: 20111024
  Receipt Date: 20111024
  Transmission Date: 20120403
  Serious: Yes (Other)
  Sender: FDA-Public Use
  Company Number: None

PATIENT
  Age: 74 Year
  Sex: Female
  Weight: 63.502 kg

DRUGS (1)
  1. TAMOXIFEN CITRATE [Suspect]
     Indication: BREAST CANCER
     Dosage: ONE
     Route: 048
     Dates: start: 20100715, end: 20111231

REACTIONS (3)
  - WEIGHT INCREASED [None]
  - PAIN [None]
  - GAIT DISTURBANCE [None]
